APPROVED DRUG PRODUCT: CLONIDINE HYDROCHLORIDE
Active Ingredient: CLONIDINE HYDROCHLORIDE
Strength: 0.2MG
Dosage Form/Route: TABLET, EXTENDED RELEASE;ORAL
Application: A202792 | Product #002
Applicant: ACTAVIS ELIZABETH LLC AN INDIRECT WHOLLY OWNED SUB OF TEVA PHARMACEUTICALS USA INC
Approved: May 15, 2015 | RLD: No | RS: No | Type: DISCN